FAERS Safety Report 20821799 (Version 1)
Quarter: 2022Q2

REPORT INFORMATION
  Report Type: Spontaneous
  Country: CN (occurrence: CN)
  Receive Date: 20220512
  Receipt Date: 20220512
  Transmission Date: 20220721
  Serious: Yes (Hospitalization)
  Sender: FDA-Public Use
  Company Number: CN-PFIZER INC-202200679271

PATIENT
  Age: 36 Year
  Sex: Male
  Weight: 81 kg

DRUGS (2)
  1. CYTARABINE [Suspect]
     Active Substance: CYTARABINE
     Indication: Acute lymphocytic leukaemia
     Dosage: 3000 MG, 2X/DAY
     Route: 041
     Dates: start: 20220409, end: 20220410
  2. METHOTREXATE [Suspect]
     Active Substance: METHOTREXATE
     Indication: Acute lymphocytic leukaemia
     Dosage: 1500 MG, 1X/DAY
     Route: 041
     Dates: start: 20220408, end: 20220408

REACTIONS (1)
  - Myelosuppression [Recovering/Resolving]

NARRATIVE: CASE EVENT DATE: 20220413
